FAERS Safety Report 17827559 (Version 3)
Quarter: 2020Q3

REPORT INFORMATION
  Report Type: Report from Study
  Country: None (occurrence: US)
  Receive Date: 20200527
  Receipt Date: 20200825
  Transmission Date: 20201102
  Serious: Yes (Other)
  Sender: FDA-Public Use
  Company Number: US-ABBVIE-19K-163-3207831-00

PATIENT
  Sex: Female
  Weight: 77.18 kg

DRUGS (2)
  1. HUMIRA [Suspect]
     Active Substance: ADALIMUMAB
     Indication: RHEUMATOID ARTHRITIS
     Dosage: CITRATE FREE
     Route: 058
     Dates: start: 2017
  2. HUMIRA [Suspect]
     Active Substance: ADALIMUMAB
     Indication: UVEITIS
     Dosage: CITRATE FREE
     Route: 058
     Dates: start: 201912

REACTIONS (11)
  - Vitreous floaters [Not Recovered/Not Resolved]
  - Crohn^s disease [Recovering/Resolving]
  - Rheumatoid arthritis [Recovering/Resolving]
  - Cataract operation complication [Unknown]
  - Cataract [Unknown]
  - Pre-existing condition improved [Unknown]
  - Uveitis [Not Recovered/Not Resolved]
  - Seasonal allergy [Unknown]
  - Constipation [Unknown]
  - Migraine [Not Recovered/Not Resolved]
  - Therapeutic response unexpected [Unknown]

NARRATIVE: CASE EVENT DATE: 2019
